FAERS Safety Report 4389270-6 (Version None)
Quarter: 2004Q2

REPORT INFORMATION
  Report Type: 
  Country: None (occurrence: None)
  Receive Date: 20040628
  Receipt Date: 20040618
  Transmission Date: 20050107
  Serious: Yes (Other)
  Sender: FDA-Public Use
  Company Number: 200417894BWH

PATIENT
  Age: 77 Year
  Sex: Male

DRUGS (24)
  1. LEVITRA [Suspect]
     Indication: ERECTILE DYSFUNCTION
     Dosage: 10 MG, OW,ORAL; SEE IMAGE
     Route: 048
     Dates: start: 20040315, end: 20040508
  2. LEVITRA [Suspect]
     Indication: ERECTILE DYSFUNCTION
     Dosage: 10 MG, OW,ORAL; SEE IMAGE
     Route: 048
     Dates: start: 20040509
  3. DETROL [Concomitant]
  4. UROXATRAL [Concomitant]
  5. CHLORTHALIDONE [Concomitant]
  6. ADVAIR DISKUS 100/50 [Concomitant]
  7. ALBUTEROL [Concomitant]
  8. FLONASE [Concomitant]
  9. CELEBREX [Concomitant]
  10. DURATUSS [Concomitant]
  11. SINGULAIR [Concomitant]
  12. PREVACID [Concomitant]
  13. NORVASC [Concomitant]
  14. K-LOR [Concomitant]
  15. PATANOL [Concomitant]
  16. PERIOSTAT [Concomitant]
  17. VITAMIN E [Concomitant]
  18. VITAMIN B6 [Concomitant]
  19. VITAMIN C [Concomitant]
  20. MULTIVITAMIN [Concomitant]
  21. CALTRATE + D [Concomitant]
  22. DOCUSATE SODIUM [Concomitant]
  23. GLUCOSAMINE [Concomitant]
  24. FLAXSEED OIL [Concomitant]

REACTIONS (2)
  - MEDICATION ERROR [None]
  - PENILE HAEMORRHAGE [None]
